FAERS Safety Report 25879119 (Version 1)
Quarter: 2025Q4

REPORT INFORMATION
  Report Type: Spontaneous
  Country: US (occurrence: US)
  Receive Date: 20251003
  Receipt Date: 20251003
  Transmission Date: 20260118
  Serious: Yes (Other)
  Sender: BAYER HEALTHCARE PHARMACEUTICALS INC.
  Company Number: US-BAYER-2025A129527

PATIENT
  Age: 23 Year
  Sex: Female

DRUGS (1)
  1. LEVONORGESTREL [Suspect]
     Active Substance: LEVONORGESTREL
     Dosage: UNK
     Route: 015

REACTIONS (3)
  - Encephalopathy [Recovering/Resolving]
  - Facial paralysis [Recovering/Resolving]
  - Cerebral cavernous malformation [Recovering/Resolving]
